FAERS Safety Report 7277984-X (Version None)
Quarter: 2011Q1

REPORT INFORMATION
  Report Type: 
  Country: None (occurrence: None)
  Receive Date: 20110207
  Receipt Date: 20110119
  Transmission Date: 20110831
  Serious: Yes (Other)
  Sender: FDA-Public Use
  Company Number: CA-ASTRAZENECA-2011SE03977

PATIENT
  Age: 73 Year
  Sex: Male
  Weight: 136.1 kg

DRUGS (8)
  1. INSULIN [Concomitant]
  2. ZOLADEX [Suspect]
     Indication: PROSTATE CANCER
     Route: 058
     Dates: start: 20091001
  3. HEART RYTHM MEDICATION [Concomitant]
     Indication: ARRHYTHMIA
  4. BLOOD PRESURE MEDICATION [Concomitant]
  5. ASPIRIN [Concomitant]
  6. THYROID MEDICATION [Concomitant]
  7. BLOOD THINNER MEDICATION [Concomitant]
  8. METFORMIN [Concomitant]

REACTIONS (1)
  - BLOOD GLUCOSE INCREASED [None]
